FAERS Safety Report 18425034 (Version 1)
Quarter: 2020Q4

REPORT INFORMATION
  Report Type: Spontaneous
  Country: JP (occurrence: JP)
  Receive Date: 20201026
  Receipt Date: 20201026
  Transmission Date: 20210114
  Serious: Yes (Death, Hospitalization, Other)
  Sender: FDA-Public Use
  Company Number: JP-B.I. PHARMACEUTICALS,INC./RIDGEFIELD-2020-BI-056902

PATIENT
  Age: 64 Year
  Sex: Male

DRUGS (2)
  1. OFEV [Suspect]
     Active Substance: NINTEDANIB
     Indication: IDIOPATHIC PULMONARY FIBROSIS
     Route: 048
     Dates: start: 20180720
  2. OFEV [Suspect]
     Active Substance: NINTEDANIB
     Route: 048
     Dates: end: 20200227

REACTIONS (5)
  - Death [Fatal]
  - Decreased appetite [Recovered/Resolved]
  - Nausea [Recovered/Resolved]
  - Pneumonia bacterial [Unknown]
  - Taste disorder [Recovered/Resolved]

NARRATIVE: CASE EVENT DATE: 20181025
